FAERS Safety Report 21414123 (Version 1)
Quarter: 2022Q4

REPORT INFORMATION
  Report Type: Spontaneous
  Country: US (occurrence: US)
  Receive Date: 20221006
  Receipt Date: 20221006
  Transmission Date: 20230113
  Serious: No
  Sender: FDA-Public Use
  Company Number: US-ALLERGAN-2225446US

PATIENT
  Age: 64 Year
  Sex: Female
  Weight: 73.028 kg

DRUGS (13)
  1. QULIPTA [Suspect]
     Active Substance: ATOGEPANT
     Indication: Migraine prophylaxis
     Dosage: 60 MG, QD
     Route: 048
     Dates: start: 20220611
  2. UBRELVY [Concomitant]
     Active Substance: UBROGEPANT
     Indication: Migraine
     Dosage: UNK
  3. TYLENOL [Concomitant]
     Active Substance: ACETAMINOPHEN
     Indication: Migraine
     Dosage: UNK
  4. ASCORBIC ACID\CRANBERRY [Concomitant]
     Active Substance: ASCORBIC ACID\CRANBERRY
     Indication: Supplementation therapy
     Dosage: UNK
  5. D-MANNOSE [Concomitant]
     Indication: Urinary tract disorder prophylaxis
     Dosage: UNK
  6. GABAPENTIN [Concomitant]
     Active Substance: GABAPENTIN
     Indication: Migraine
     Dosage: UNK
  7. TOPAMAX [Concomitant]
     Active Substance: TOPIRAMATE
     Indication: Migraine
     Dosage: UNK
  8. BISOPROLOL [Concomitant]
     Active Substance: BISOPROLOL
     Indication: Hypertension
     Dosage: UNK
  9. OMEPRAZOLE [Concomitant]
     Active Substance: OMEPRAZOLE
     Indication: Gastrooesophageal reflux disease
     Dosage: UNK
  10. ASPIRIN [Concomitant]
     Active Substance: ASPIRIN
     Indication: Cardiac disorder
     Dosage: 81 MG
  11. ASPIRIN [Concomitant]
     Active Substance: ASPIRIN
     Indication: Thrombosis prophylaxis
  12. NEXLETOL [Concomitant]
     Active Substance: BEMPEDOIC ACID
     Indication: Blood cholesterol increased
     Dosage: UNK
  13. ZETIA [Concomitant]
     Active Substance: EZETIMIBE
     Indication: Blood cholesterol increased
     Dosage: UNK

REACTIONS (2)
  - Dizziness [Recovered/Resolved]
  - Therapeutic product effect incomplete [Unknown]

NARRATIVE: CASE EVENT DATE: 20220601
